FAERS Safety Report 8719264 (Version 2)
Quarter: 2012Q4

REPORT INFORMATION
  Report Type: 
  Country: FR (occurrence: FR)
  Receive Date: 20120813
  Receipt Date: 20121109
  Transmission Date: 20130627
  Serious: Yes (Hospitalization)
  Sender: FDA-Public Use
  Company Number: FR-SP-E2012-05180

PATIENT
  Age: 36 Year
  Sex: Female

DRUGS (1)
  1. TUBERTEST [Suspect]
     Indication: IMMUNISATION
     Route: 065
     Dates: start: 20120730, end: 20120730

REACTIONS (6)
  - Hypersensitivity [Recovered/Resolved]
  - Oedema peripheral [Recovered/Resolved]
  - Lip oedema [Recovered/Resolved]
  - Malaise [Recovered/Resolved]
  - Pyrexia [Recovered/Resolved]
  - Urticaria [Recovered/Resolved]
